FAERS Safety Report 9498401 (Version 2)
Quarter: 2013Q3

REPORT INFORMATION
  Report Type: Spontaneous
  Country: US (occurrence: US)
  Receive Date: 20130904
  Receipt Date: 20130927
  Transmission Date: 20140515
  Serious: Yes (Other)
  Sender: FDA-Public Use
  Company Number: US-GLAXOSMITHKLINE-A1037178A

PATIENT
  Age: 82 Year
  Sex: Male
  Weight: 63.2 kg

DRUGS (10)
  1. VOTRIENT [Suspect]
     Indication: RENAL CANCER
     Dosage: 400MG PER DAY
     Route: 048
     Dates: start: 20111019, end: 20130808
  2. METOPROLOL [Concomitant]
  3. AMLODIPINE [Concomitant]
  4. CLOPIDOGREL [Concomitant]
  5. LISINOPRIL [Concomitant]
  6. FENOFIBRATE [Concomitant]
  7. BIOTIN [Concomitant]
  8. NYSTATIN [Concomitant]
  9. IMODIUM [Concomitant]
  10. CENTRUM SILVER [Concomitant]

REACTIONS (7)
  - Drug ineffective [Unknown]
  - Disease progression [Unknown]
  - Weight decreased [Unknown]
  - Decreased appetite [Unknown]
  - Hepatic cirrhosis [Unknown]
  - Thrombocytopenia [Unknown]
  - Portal hypertension [Unknown]
